FAERS Safety Report 5357138-4 (Version None)
Quarter: 2007Q2

REPORT INFORMATION
  Report Type: 
  Country: None (occurrence: None)
  Receive Date: 20070612
  Receipt Date: 20070528
  Transmission Date: 20071010
  Serious: Yes (Other)
  Sender: FDA-Public Use
  Company Number: PHRM2007FR01394

PATIENT
  Age: 75 Year
  Sex: Female

DRUGS (5)
  1. VISUDYNE [Suspect]
     Indication: MACULAR DEGENERATION
     Dosage: 4.77 ML DAILY IV
     Route: 042
     Dates: start: 20070424, end: 20070424
  2. ALDACTONE [Concomitant]
  3. MONO-TILDIEM [Concomitant]
  4. LOXEN [Concomitant]
  5. DIDRONEL [Concomitant]

REACTIONS (4)
  - INFUSION SITE ERYTHEMA [None]
  - INFUSION SITE EXTRAVASATION [None]
  - INFUSION SITE NECROSIS [None]
  - INFUSION SITE OEDEMA [None]
